FAERS Safety Report 19085022 (Version 1)
Quarter: 2021Q2

REPORT INFORMATION
  Report Type: Spontaneous
  Country: FR (occurrence: FR)
  Receive Date: 20210402
  Receipt Date: 20210402
  Transmission Date: 20210717
  Serious: Yes (Other)
  Sender: FDA-Public Use
  Company Number: FR-SUN PHARMACEUTICAL INDUSTRIES LTD-2021RR-289154

PATIENT
  Age: 20 Year
  Sex: Female
  Weight: 56 kg

DRUGS (11)
  1. PARACETAMOL [Concomitant]
     Active Substance: ACETAMINOPHEN
     Indication: ABDOMINAL PAIN
     Dosage: 1 GRAM, QID
     Route: 048
     Dates: start: 20180517, end: 20180528
  2. LAMICTAL 200 MG, COMPRIME [Concomitant]
     Indication: EPILEPSY
     Dosage: 1 DOSAGE FORM, DAILY
     Route: 048
  3. ENOXAPARINE SODIQUE ((MAMMIFERE/PORC/MUQUEUSE INTESTINALE)) [Concomitant]
     Active Substance: ENOXAPARIN SODIUM
     Indication: CARDIOVASCULAR EVENT PROPHYLAXIS
     Dosage: 4000 INTERNATIONAL UNIT, DAILY
     Route: 058
     Dates: start: 20180517, end: 20180528
  4. VANCOMYCINE [Concomitant]
     Active Substance: VANCOMYCIN
     Indication: CAMPYLOBACTER COLITIS
     Dosage: 500 MILLIGRAM, DAILY
     Route: 048
     Dates: start: 20180518, end: 20180528
  5. CIPROFLOXACIN. [Suspect]
     Active Substance: CIPROFLOXACIN
     Indication: CAMPYLOBACTER COLITIS
     Dosage: 1000 MILLIGRAM, DAILY
     Route: 048
     Dates: start: 20180517, end: 20180523
  6. SPASFON LYOC 80 MG, LYOPHILISAT ORAL [Concomitant]
     Active Substance: PHLOROGLUCINOL
     Indication: ABDOMINAL PAIN
     Dosage: 3 DOSAGE FORM, DAILY
     Route: 048
     Dates: start: 20180517, end: 20180522
  7. XENETIX 350 (350 MG D^IODE/ML), SOLUTION INJECTABLE [Concomitant]
     Active Substance: IOBITRIDOL
     Indication: SCAN WITH CONTRAST
     Dosage: 110 MILLILITER, IN TOTAL
     Route: 042
     Dates: start: 20180516, end: 20180516
  8. METRONIDAZOLE. [Concomitant]
     Active Substance: METRONIDAZOLE
     Indication: CAMPYLOBACTER COLITIS
     Dosage: 1500 MILLIGRAM, DAILY
     Route: 048
     Dates: start: 20180517, end: 20180518
  9. CEFTRIAXONE. [Suspect]
     Active Substance: CEFTRIAXONE
     Indication: CAMPYLOBACTER COLITIS
     Dosage: 1 GRAM, IN TOTAL
     Route: 042
     Dates: start: 20180517, end: 20180517
  10. TRIMEBUTINE [Concomitant]
     Active Substance: TRIMEBUTINE
     Indication: ABDOMINAL PAIN
     Dosage: 200 MILLIGRAM, DAILY
     Route: 042
     Dates: start: 20180519, end: 20180528
  11. OXYCODONE [Concomitant]
     Active Substance: OXYCODONE
     Indication: PAIN
     Dosage: 5 MILLIGRAM, QID
     Route: 048
     Dates: start: 20180517, end: 20180525

REACTIONS (4)
  - Toxic skin eruption [Recovered/Resolved]
  - Gamma-glutamyltransferase increased [Recovered/Resolved]
  - Cell death [Recovered/Resolved]
  - Rash maculo-papular [Recovered/Resolved]

NARRATIVE: CASE EVENT DATE: 20180519
